FAERS Safety Report 19579980 (Version 4)
Quarter: 2021Q3

REPORT INFORMATION
  Report Type: Spontaneous
  Country: GB (occurrence: GB)
  Receive Date: 20210720
  Receipt Date: 20210927
  Transmission Date: 20211014
  Serious: Yes (Hospitalization)
  Sender: FDA-Public Use
  Company Number: GB-BIOGEN-2018BI00508572

PATIENT
  Age: 65 Year
  Sex: Female

DRUGS (17)
  1. AVONEX PEN [Suspect]
     Active Substance: INTERFERON BETA-1A
  2. AVONEX [Suspect]
     Active Substance: INTERFERON BETA-1A
  3. AVONEX [Suspect]
     Active Substance: INTERFERON BETA-1A
  4. AVONEX [Suspect]
     Active Substance: INTERFERON BETA-1A
  5. AVONEX [Suspect]
     Active Substance: INTERFERON BETA-1A
  6. AVONEX [Suspect]
     Active Substance: INTERFERON BETA-1A
     Indication: MULTIPLE SCLEROSIS
     Dosage: 6MEGA U/0.5ML
     Route: 030
  7. AVONEX [Suspect]
     Active Substance: INTERFERON BETA-1A
  8. AVONEX [Suspect]
     Active Substance: INTERFERON BETA-1A
  9. AVONEX PEN [Suspect]
     Active Substance: INTERFERON BETA-1A
     Indication: MULTIPLE SCLEROSIS
     Dosage: 30MCG/0.5ML?(6MILLION UNITS)
     Route: 030
  10. AVONEX [Suspect]
     Active Substance: INTERFERON BETA-1A
  11. AVONEX [Suspect]
     Active Substance: INTERFERON BETA-1A
  12. AVONEX PEN [Suspect]
     Active Substance: INTERFERON BETA-1A
  13. AVONEX [Suspect]
     Active Substance: INTERFERON BETA-1A
  14. AVONEX [Suspect]
     Active Substance: INTERFERON BETA-1A
  15. AVONEX PEN [Suspect]
     Active Substance: INTERFERON BETA-1A
  16. AVONEX [Suspect]
     Active Substance: INTERFERON BETA-1A
  17. AVONEX [Suspect]
     Active Substance: INTERFERON BETA-1A

REACTIONS (15)
  - Urinary tract infection [Unknown]
  - Oedema peripheral [Not Recovered/Not Resolved]
  - Incontinence [Not Recovered/Not Resolved]
  - Memory impairment [Not Recovered/Not Resolved]
  - Multiple sclerosis relapse [Not Recovered/Not Resolved]
  - Decreased gait velocity [Unknown]
  - Disturbance in attention [Unknown]
  - Product dose omission issue [Unknown]
  - Infection [Unknown]
  - Gait inability [Unknown]
  - Fall [Recovered/Resolved]
  - Pain in extremity [Not Recovered/Not Resolved]
  - Cellulitis [Not Recovered/Not Resolved]
  - Balance disorder [Unknown]
  - Musculoskeletal disorder [Unknown]

NARRATIVE: CASE EVENT DATE: 20210916
